FAERS Safety Report 16115609 (Version 1)
Quarter: 2019Q1

REPORT INFORMATION
  Report Type: Spontaneous
  Country: DE (occurrence: DE)
  Receive Date: 20190326
  Receipt Date: 20190326
  Transmission Date: 20190418
  Serious: Yes (Hospitalization, Disabling, Other)
  Sender: FDA-Public Use
  Company Number: DE-SUN PHARMACEUTICAL INDUSTRIES LTD-2019RR-202870

PATIENT
  Age: 63 Year
  Sex: Female

DRUGS (5)
  1. HYPERICUM /01166804/ [Suspect]
     Active Substance: HYPERICUM PERFORATUM
     Indication: DEPRESSION
     Dosage: DAILY DOSE: 900 MG MILLIGRAM(S) EVERY DAY
     Route: 048
  2. TEMOZOLOMIDE. [Suspect]
     Active Substance: TEMOZOLOMIDE
     Indication: PRODUCT USED FOR UNKNOWN INDICATION
     Dosage: TOTAL DOSE: 11040 MG
     Route: 065
  3. TEMOZOLOMIDE. [Suspect]
     Active Substance: TEMOZOLOMIDE
     Indication: GLIOBLASTOMA MULTIFORME
     Dosage: 75 MILLIGRAM/SQ. METER, UNK
     Route: 065
  4. TEMOZOLOMIDE. [Suspect]
     Active Substance: TEMOZOLOMIDE
     Indication: CHEMOTHERAPY
     Dosage: TOTAL DOSE OF 5040 MG
     Route: 065
  5. TEMOZOLOMIDE. [Suspect]
     Active Substance: TEMOZOLOMIDE
     Indication: PRODUCT USED FOR UNKNOWN INDICATION
     Dosage: FOUR ADDITIONAL CYCLES, 150-200 MG/M2 BODY SURFACE, TOTAL DOSE OF 6000 MG
     Route: 065

REACTIONS (3)
  - Radiation interaction [Unknown]
  - Optic neuropathy [Not Recovered/Not Resolved]
  - Drug interaction [Recovering/Resolving]

NARRATIVE: CASE EVENT DATE: 2010
